FAERS Safety Report 8986520 (Version 1)
Quarter: 2012Q4

REPORT INFORMATION
  Report Type: 
  Country: IT (occurrence: IT)
  Receive Date: 20121227
  Receipt Date: 20121227
  Transmission Date: 20130627
  Serious: Yes (Other)
  Sender: FDA-Public Use
  Company Number: IT-TEVA-376705ISR

PATIENT
  Age: 37 Year
  Sex: Female

DRUGS (5)
  1. IRINOTECAN [Suspect]
     Indication: RECTAL CANCER
     Dosage: 230 Milligram Daily;
     Route: 042
     Dates: start: 20120720, end: 20121103
  2. FLUOROURACILE [Suspect]
     Indication: RECTAL CANCER
     Dosage: 3500 Milligram Daily;
     Route: 042
     Dates: start: 20120720, end: 20121103
  3. ERBITUX [Suspect]
     Indication: RECTAL CANCER
     Dosage: 635 Milligram Daily;
     Route: 042
     Dates: start: 20120720, end: 20121103
  4. EUTIROX [Concomitant]
     Indication: AUTOIMMUNE THYROIDITIS
  5. CALCIOLEVOFOLINATO [Concomitant]
     Dates: start: 20120720, end: 20120912

REACTIONS (2)
  - Diarrhoea [Recovered/Resolved]
  - Papule [Recovered/Resolved]
